FAERS Safety Report 6446721-0 (Version None)
Quarter: 2009Q4

REPORT INFORMATION
  Report Type: 
  Country: None (occurrence: None)
  Receive Date: 20091119
  Receipt Date: 20091113
  Transmission Date: 20100525
  Serious: Yes (Hospitalization)
  Sender: FDA-Public Use
  Company Number: B0605993A

PATIENT
  Sex: Female

DRUGS (1)
  1. ALIFLUS [Suspect]
     Indication: ASTHMA
     Route: 055
     Dates: start: 20090910, end: 20090920

REACTIONS (4)
  - ANXIETY [None]
  - DYSPNOEA [None]
  - PANIC ATTACK [None]
  - TACHYCARDIA [None]
